FAERS Safety Report 5247946-2 (Version None)
Quarter: 2007Q1

REPORT INFORMATION
  Report Type: 
  Country: None (occurrence: None)
  Receive Date: 20070227
  Receipt Date: 20070219
  Transmission Date: 20070707
  Serious: Yes (Disabling)
  Sender: FDA-Public Use
  Company Number: JP-MERCK-0702USA03968

PATIENT
  Age: 70 Year
  Sex: Female

DRUGS (3)
  1. ZOCOR [Suspect]
     Indication: HYPERLIPIDAEMIA
     Route: 048
     Dates: start: 20031201, end: 20060601
  2. ZOCOR [Suspect]
     Indication: HYPERCHOLESTEROLAEMIA
     Route: 048
     Dates: start: 20031201, end: 20060601
  3. DAIKENCHUTO [Concomitant]
     Route: 048

REACTIONS (6)
  - GASTRITIS [None]
  - ILEAL ULCER [None]
  - IRON DEFICIENCY ANAEMIA [None]
  - MALAISE [None]
  - PALLOR [None]
  - RENAL CYST [None]
